FAERS Safety Report 4810894-3 (Version None)
Quarter: 2005Q4

REPORT INFORMATION
  Report Type: 
  Country: None (occurrence: None)
  Receive Date: 20051027
  Receipt Date: 20051024
  Transmission Date: 20060501
  Serious: Yes (Death)
  Sender: FDA-Public Use
  Company Number: PHBS2005CL15680

PATIENT
  Age: 83 Year
  Sex: Male

DRUGS (1)
  1. MIACALCIN [Suspect]
     Route: 045
     Dates: start: 20020901

REACTIONS (1)
  - DEATH [None]
